FAERS Safety Report 4956917-2 (Version None)
Quarter: 2006Q1

REPORT INFORMATION
  Report Type: 
  Country: None (occurrence: None)
  Receive Date: 20060323
  Receipt Date: 20060313
  Transmission Date: 20060701
  Serious: Yes (Death)
  Sender: FDA-Public Use
  Company Number: T200600069

PATIENT
  Age: 33 Year
  Sex: 0

DRUGS (3)
  1. HYDROCODONE/APAP (HYDROCODONE BITARTRATE, ACETAMINOPHEN) TABLET, 10/50 [Suspect]
     Dosage: ORAL
     Route: 048
  2. CHLORDIAZEPOXIDE [Concomitant]
     Dosage: ORAL
     Route: 048
  3. METHAMPHETAMINE HCL [Concomitant]

REACTIONS (1)
  - INTENTIONAL DRUG MISUSE [None]
